FAERS Safety Report 9603254 (Version 3)
Quarter: 2013Q4

REPORT INFORMATION
  Report Type: Spontaneous
  Country: IT (occurrence: IT)
  Receive Date: 20131007
  Receipt Date: 20131212
  Transmission Date: 20140711
  Serious: Yes (Hospitalization)
  Sender: FDA-Public Use
  Company Number: IT-PFIZER INC-2013285807

PATIENT
  Age: 59 Year
  Sex: Female

DRUGS (2)
  1. XANAX [Suspect]
     Dosage: 2 MG, TOTAL DOSAGE
     Route: 048
     Dates: start: 20130915, end: 20130915
  2. LORAZEPAM [Suspect]
     Dosage: 25 MG, TOTAL DOSAGE
     Route: 048
     Dates: start: 20130915, end: 20130915

REACTIONS (6)
  - Drug abuse [Recovered/Resolved]
  - Sopor [Recovered/Resolved]
  - Fall [Recovered/Resolved]
  - Head injury [Recovered/Resolved]
  - Face injury [Recovered/Resolved]
  - Injury [Recovered/Resolved]
